FAERS Safety Report 6544719-5 (Version None)
Quarter: 2010Q1

REPORT INFORMATION
  Report Type: 
  Country: None (occurrence: None)
  Receive Date: 20100121
  Receipt Date: 20100121
  Transmission Date: 20100710
  Serious: Yes (Disabling)
  Sender: FDA-Public Use
  Company Number: PHHO2008PL07766

PATIENT
  Sex: Female
  Weight: 88 kg

DRUGS (8)
  1. ALISKIREN ALI+TAB [Suspect]
     Indication: ACUTE MYOCARDIAL INFARCTION
     Dosage: 300 MG, QD
     Route: 048
     Dates: start: 20080404
  2. ATORVASTATIN [Concomitant]
  3. CLOPIDOGREL [Concomitant]
  4. ACARD [Concomitant]
  5. CARVEDILOL [Concomitant]
  6. GOPTEN [Concomitant]
  7. FUROSEMID [Concomitant]
  8. DIAPREL [Concomitant]

REACTIONS (2)
  - MUSCULOSKELETAL PAIN [None]
  - RASH [None]
